FAERS Safety Report 12428480 (Version 1)
Quarter: 2016Q2

REPORT INFORMATION
  Report Type: Spontaneous
  Country: US (occurrence: US)
  Receive Date: 20160602
  Receipt Date: 20160602
  Transmission Date: 20160815
  Serious: Yes (Hospitalization, Other)
  Sender: FDA-Public Use
  Company Number: US-ELI_LILLY_AND_COMPANY-US201605009715

PATIENT
  Age: 64 Year
  Sex: Female

DRUGS (12)
  1. ALDACTONE [Concomitant]
     Active Substance: SPIRONOLACTONE
  2. FLOLAN [Suspect]
     Active Substance: EPOPROSTENOL SODIUM
     Indication: PULMONARY ARTERIAL HYPERTENSION
     Dosage: 25.5 NG/KG/MIN, OTHER
     Route: 042
     Dates: start: 19991101
  3. FLOLAN [Suspect]
     Active Substance: EPOPROSTENOL SODIUM
     Dosage: 25.5 NG/KG/MIN, OTHER
     Route: 042
  4. REVATIO [Concomitant]
     Active Substance: SILDENAFIL CITRATE
  5. FLOLAN [Suspect]
     Active Substance: EPOPROSTENOL SODIUM
     Dosage: 25.5 NG/KG/MIN,, OTHER
     Dates: start: 19991101
  6. ADCIRCA [Suspect]
     Active Substance: TADALAFIL
     Indication: PRODUCT USED FOR UNKNOWN INDICATION
     Dosage: 20 MG, QD
     Route: 065
  7. COMBIVENT [Concomitant]
     Active Substance: ALBUTEROL SULFATE\IPRATROPIUM BROMIDE
  8. LACTULOSE. [Concomitant]
     Active Substance: LACTULOSE
  9. FLOLAN [Suspect]
     Active Substance: EPOPROSTENOL SODIUM
     Dosage: 25.5 DF, CYCLICAL
     Route: 042
     Dates: start: 19991101
  10. LASIX [Concomitant]
     Active Substance: FUROSEMIDE
  11. FLOLAN [Suspect]
     Active Substance: EPOPROSTENOL SODIUM
     Dosage: 25.5 NG/KG/MIN, OTHER
     Route: 042
  12. PRILOSEC [Concomitant]
     Active Substance: OMEPRAZOLE MAGNESIUM

REACTIONS (10)
  - Pain [Unknown]
  - Eye pruritus [Unknown]
  - Liver injury [Unknown]
  - Nasopharyngitis [Unknown]
  - Hypertension [Unknown]
  - Rash [Unknown]
  - Epistaxis [Recovered/Resolved]
  - Eye infection [Unknown]
  - Nerve compression [Unknown]
  - Chest discomfort [Unknown]

NARRATIVE: CASE EVENT DATE: 201408
